FAERS Safety Report 5255837-6 (Version None)
Quarter: 2007Q1

REPORT INFORMATION
  Report Type: 
  Country: None (occurrence: None)
  Receive Date: 20070301
  Receipt Date: 20070220
  Transmission Date: 20070707
  Serious: Yes (Hospitalization)
  Sender: FDA-Public Use
  Company Number: 2007AL000722

PATIENT
  Age: 47 Year
  Sex: Male

DRUGS (9)
  1. NIFEDIPINE [Suspect]
     Indication: HYPERTENSION
     Dosage: 30 MG, Q12H; UNK
     Dates: start: 20020101, end: 20050501
  2. DOXAZOSIN MESYLATE [Concomitant]
  3. FUROSEMIDE [Concomitant]
  4. STAVUDINE [Concomitant]
  5. LAMIVUDINE [Concomitant]
  6. LOPINAVIR [Concomitant]
  7. RITONAVIR [Concomitant]
  8. ENALAPRIL MALEATE [Concomitant]
  9. LOSARTAN POSTASSIUM [Concomitant]

REACTIONS (4)
  - DRUG INTERACTION [None]
  - GLOMERULONEPHRITIS MEMBRANOPROLIFERATIVE [None]
  - HYPOTENSION [None]
  - RENAL FAILURE ACUTE [None]
